FAERS Safety Report 5775749-9 (Version None)
Quarter: 2008Q2

REPORT INFORMATION
  Report Type: 
  Country: None (occurrence: None)
  Receive Date: 20080617
  Receipt Date: 20080616
  Transmission Date: 20081010
  Serious: Yes (Hospitalization)
  Sender: FDA-Public Use
  Company Number: US-BOEHRINGER INGELHEIM GMBH, GERMANY-2008-DE-03502GD

PATIENT
  Age: 6 Year
  Sex: Female
  Weight: 21 kg

DRUGS (2)
  1. CLONIDINE [Suspect]
     Indication: ATTENTION DEFICIT/HYPERACTIVITY DISORDER
     Route: 048
  2. CLONIDINE [Suspect]
     Indication: TIC
     Route: 062

REACTIONS (10)
  - ACCIDENTAL POISONING [None]
  - MENTAL IMPAIRMENT [None]
  - MIOSIS [None]
  - OVERDOSE [None]
  - PALLOR [None]
  - RESPIRATORY RATE DECREASED [None]
  - SEDATION [None]
  - SINUS BRADYCARDIA [None]
  - SOMNOLENCE [None]
  - UNRESPONSIVE TO STIMULI [None]
